FAERS Safety Report 8582946-6 (Version None)
Quarter: 2012Q3

REPORT INFORMATION
  Report Type: 
  Country: None (occurrence: None)
  Receive Date: 20120809
  Receipt Date: 20120806
  Transmission Date: 20120928
  Serious: Yes (Hospitalization)
  Sender: FDA-Public Use
  Company Number: CH-PFIZER INC-2012184320

PATIENT
  Age: 73 Year
  Sex: Male

DRUGS (14)
  1. TAMSULOSIN HCL [Concomitant]
     Dosage: 400 UG, DAILY
     Route: 048
  2. ATORVASTATIN CALCIUM [Concomitant]
     Dosage: 40 MG DAILY
     Route: 048
  3. ASPIRIN [Suspect]
     Indication: CEREBRAL INFARCTION
     Dosage: 100 MG DAILY
     Route: 048
     Dates: start: 20110416, end: 20120511
  4. SEROQUEL [Concomitant]
     Dosage: 25 MG, 4X/DAY
     Route: 048
  5. PLAVIX [Suspect]
     Indication: CEREBRAL INFARCTION
     Dosage: 75 MG, DAILY
     Route: 048
     Dates: start: 20110426, end: 20120511
  6. TRIATEC COMP [Concomitant]
     Dosage: 2.5 MG/12.5 MG DAILY
     Route: 048
     Dates: end: 20120501
  7. FLECTOR [Suspect]
     Dosage: UNK
     Route: 061
     Dates: end: 20120501
  8. BISOPROLOL FUMARATE [Concomitant]
     Dosage: 10 MG DAILY
     Route: 048
     Dates: end: 20120501
  9. ASPIRIN [Suspect]
     Dosage: 100 MG, 1X/DAY
     Route: 048
     Dates: start: 20120521
  10. ESCITALOPRAM [Suspect]
     Indication: BIPOLAR DISORDER
     Dosage: 10 MG DAILY
     Route: 048
     Dates: start: 20110401
  11. LANTUS [Concomitant]
     Dosage: 4 IU DAILY
     Route: 058
  12. REMERON [Suspect]
     Indication: DEPRESSION
     Dosage: 30 MG DAILY
     Route: 048
     Dates: start: 20120401
  13. GLUCOPHAGE [Suspect]
     Indication: TYPE 2 DIABETES MELLITUS
     Dosage: 850 MG DAILY
     Route: 048
     Dates: end: 20120501
  14. HALDOL [Concomitant]
     Dosage: UNK

REACTIONS (4)
  - MELAENA [None]
  - RENAL FAILURE ACUTE [None]
  - GASTROINTESTINAL HAEMORRHAGE [None]
  - HAEMORRHAGIC ANAEMIA [None]
